FAERS Safety Report 8974174 (Version 1)
Quarter: 2012Q4

REPORT INFORMATION
  Report Type: Spontaneous
  Country: US (occurrence: None)
  Receive Date: 20121217
  Receipt Date: 20121217
  Transmission Date: 20130627
  Serious: Yes (Life-Threatening, Hospitalization, Disabling, Other)
  Sender: FDA-Public Use
  Company Number: None

PATIENT
  Age: 67 None
  Sex: Male
  Weight: 123.38 kg

DRUGS (2)
  1. DEXILANT [Suspect]
     Indication: INDIGESTION
     Route: 048
     Dates: start: 20110119
  2. DEXILANT [Suspect]
     Indication: GERD
     Route: 048
     Dates: start: 20110119

REACTIONS (3)
  - Fatigue [None]
  - Deep vein thrombosis [None]
  - General physical health deterioration [None]
